FAERS Safety Report 24895249 (Version 2)
Quarter: 2025Q1

REPORT INFORMATION
  Report Type: Report from Study
  Country: US (occurrence: US)
  Receive Date: 20250128
  Receipt Date: 20250204
  Transmission Date: 20250409
  Serious: Yes (Other)
  Sender: ELI LILLY AND COMPANY
  Company Number: US-ELI_LILLY_AND_COMPANY-US202501012722

PATIENT
  Age: 77 Year
  Sex: Female

DRUGS (7)
  1. KISUNLA [Suspect]
     Active Substance: DONANEMAB-AZBT
     Indication: Product used for unknown indication
     Dosage: 700 MG, MONTHLY (1/M)
     Route: 065
     Dates: start: 20241220
  2. KISUNLA [Suspect]
     Active Substance: DONANEMAB-AZBT
     Dosage: 700 MG, MONTHLY (1/M)
     Route: 065
     Dates: start: 20250117
  3. EPINEPHRINE [Suspect]
     Active Substance: EPINEPHRINE
     Indication: Flushing
     Route: 065
     Dates: start: 20250117
  4. EPINEPHRINE [Suspect]
     Active Substance: EPINEPHRINE
     Indication: Throat tightness
  5. EPINEPHRINE [Suspect]
     Active Substance: EPINEPHRINE
     Indication: Hyperhidrosis
  6. EPINEPHRINE [Suspect]
     Active Substance: EPINEPHRINE
     Indication: Dyspnoea
  7. EPINEPHRINE [Suspect]
     Active Substance: EPINEPHRINE
     Indication: Oxygen saturation decreased

REACTIONS (6)
  - Oxygen saturation decreased [Recovering/Resolving]
  - Flushing [Recovering/Resolving]
  - Throat tightness [Recovering/Resolving]
  - Hyperhidrosis [Recovering/Resolving]
  - Dyspnoea [Recovering/Resolving]
  - Heart rate increased [Unknown]

NARRATIVE: CASE EVENT DATE: 20250117
